FAERS Safety Report 24776610 (Version 1)
Quarter: 2024Q4

REPORT INFORMATION
  Report Type: Spontaneous
  Country: US (occurrence: US)
  Receive Date: 20241226
  Receipt Date: 20241226
  Transmission Date: 20250115
  Serious: Yes (Hospitalization)
  Sender: MACLEODS
  Company Number: US-MACLEODS PHARMA-MAC2024050782

PATIENT

DRUGS (1)
  1. OLANZAPINE [Suspect]
     Active Substance: OLANZAPINE
     Indication: Product used for unknown indication
     Dosage: ONE OF THE PILLS MAY HAVE FALLEN ON THE FLOOR AND THE CHILD CONSUMED IT
     Route: 065

REACTIONS (5)
  - Toxicity to various agents [Recovered/Resolved]
  - Mental status changes [Recovered/Resolved]
  - Crying [Recovered/Resolved]
  - Somnolence [Recovered/Resolved]
  - Accidental exposure to product [Unknown]
